FAERS Safety Report 5269581-2 (Version None)
Quarter: 2007Q1

REPORT INFORMATION
  Report Type: 
  Country: None (occurrence: None)
  Receive Date: 20070320
  Receipt Date: 20070308
  Transmission Date: 20070707
  Serious: Yes (Other)
  Sender: FDA-Public Use
  Company Number: US-JNJFOC-20061005712

PATIENT
  Sex: Female
  Weight: 77.11 kg

DRUGS (8)
  1. FENTANYL TRANSDERMAL SYSTEM [Suspect]
     Indication: PAIN
     Route: 062
  2. FENTANYL TRANSDERMAL SYSTEM [Suspect]
     Indication: BACK DISORDER
     Route: 062
  3. AMITRIPTYLINE HCL [Concomitant]
     Indication: DRUG USE FOR UNKNOWN INDICATION
     Dosage: AT NIGHT
     Route: 048
  4. ASPIRIN [Concomitant]
     Indication: NEUROPATHY
     Route: 048
  5. ENDOCET [Concomitant]
     Indication: PAIN
     Dosage: 5/325UG
     Route: 048
  6. INSULIN [Concomitant]
     Indication: DIABETES MELLITUS
     Dosage: 24  1 INJECTION IN MORNING
     Route: 058
  7. XANAX [Concomitant]
     Indication: ANXIETY
     Route: 048
  8. VICODIN [Concomitant]
     Route: 048

REACTIONS (12)
  - BLOOD GLUCOSE DECREASED [None]
  - DRUG INEFFECTIVE [None]
  - DYSPHEMIA [None]
  - FEELING HOT [None]
  - GAIT DISTURBANCE [None]
  - HYPERHIDROSIS [None]
  - HYPOKINESIA [None]
  - MALAISE [None]
  - MORBID THOUGHTS [None]
  - SENSORY DISTURBANCE [None]
  - SPEECH DISORDER [None]
  - TREMOR [None]
